FAERS Safety Report 11624771 (Version 3)
Quarter: 2015Q4

REPORT INFORMATION
  Report Type: Spontaneous
  Country: US (occurrence: US)
  Receive Date: 20151013
  Receipt Date: 20151127
  Transmission Date: 20160304
  Serious: Yes (Other)
  Sender: FDA-Public Use
  Company Number: US-JNJFOC-20151005481

PATIENT
  Age: 58 Year
  Sex: Male
  Weight: 90.72 kg

DRUGS (2)
  1. FENTANYL TRANSDERMAL SYSTEM [Suspect]
     Active Substance: FENTANYL
     Indication: PAIN
     Route: 062
     Dates: start: 201509
  2. MORPHINE [Concomitant]
     Active Substance: MORPHINE
     Route: 065

REACTIONS (11)
  - Ankle fracture [Not Recovered/Not Resolved]
  - Headache [Not Recovered/Not Resolved]
  - Product adhesion issue [Unknown]
  - Product quality issue [Unknown]
  - Wrong technique in product usage process [Unknown]
  - Back disorder [Not Recovered/Not Resolved]
  - Insomnia [Recovered/Resolved]
  - Hip fracture [Not Recovered/Not Resolved]
  - Nightmare [Recovered/Resolved]
  - Product adhesion issue [Unknown]
  - Pain [Not Recovered/Not Resolved]

NARRATIVE: CASE EVENT DATE: 201509
